FAERS Safety Report 16394395 (Version 1)
Quarter: 2019Q2

REPORT INFORMATION
  Report Type: Spontaneous
  Country: GB (occurrence: GB)
  Receive Date: 20190605
  Receipt Date: 20190605
  Transmission Date: 20190711
  Serious: Yes (Hospitalization)
  Sender: FDA-Public Use
  Company Number: GB-SAMSUNG BIOEPIS-SB-2019-13296

PATIENT
  Age: 67 Year
  Sex: Female
  Weight: 71.4 kg

DRUGS (1)
  1. ONTRUZANT [Suspect]
     Active Substance: TRASTUZUMAB-DTTB
     Indication: BREAST CANCER STAGE II
     Route: 042
     Dates: start: 20181011, end: 20181011

REACTIONS (4)
  - Hypoxia [Unknown]
  - Chest pain [Unknown]
  - Hypersensitivity [Recovered/Resolved]
  - Tachycardia [Unknown]

NARRATIVE: CASE EVENT DATE: 20181011
